FAERS Safety Report 14788112 (Version 1)
Quarter: 2018Q2

REPORT INFORMATION
  Report Type: Spontaneous
  Country: US (occurrence: US)
  Receive Date: 20180422
  Receipt Date: 20180422
  Transmission Date: 20180711
  Serious: No
  Sender: FDA-Public Use
  Company Number: US-B.I. PHARMACEUTICALS,INC./RIDGEFIELD-2018-BI-020771

PATIENT
  Sex: Male

DRUGS (3)
  1. JARDIANCE [Suspect]
     Active Substance: EMPAGLIFLOZIN
     Indication: DIABETES MELLITUS
     Dosage: ADMINISTRATION CORRECT? YES ?ACTION(S) TAKEN WITH PRODUCT: DOSE INCREASED
     Route: 048
     Dates: start: 2014, end: 201802
  2. JARDIANCE [Suspect]
     Active Substance: EMPAGLIFLOZIN
     Dosage: ;  FORM STRENGTH: 25 MG; FORMULATION: TABLET? ADMINISTRATION CORRECT? YES ?ACTION(S) TAKEN WITH PROD
     Route: 048
     Dates: start: 201802
  3. METFORMIN [Concomitant]
     Active Substance: METFORMIN HYDROCHLORIDE
     Indication: DIABETES MELLITUS
     Dosage: ;  FORM STRENGTH: 1000 MG; FORMULATION: TABLET
     Route: 048
     Dates: start: 2014

REACTIONS (1)
  - Blood glucose increased [Not Recovered/Not Resolved]

NARRATIVE: CASE EVENT DATE: 2017
